FAERS Safety Report 4428352-7 (Version None)
Quarter: 2004Q3

REPORT INFORMATION
  Report Type: 
  Country: None (occurrence: None)
  Receive Date: 20040813
  Receipt Date: 20040805
  Transmission Date: 20050211
  Serious: Yes (Death)
  Sender: FDA-Public Use
  Company Number: 2004-08-0346

PATIENT
  Age: 69 Year
  Sex: Male

DRUGS (4)
  1. PEG-INTRON [Suspect]
     Indication: HEPATITIS B
     Dosage: QWK SUBCUTANEOUS
     Route: 058
     Dates: start: 20030912
  2. PEG-INTRON [Suspect]
     Indication: HEPATITIS C
     Dosage: QWK SUBCUTANEOUS
     Route: 058
     Dates: start: 20030912
  3. REBETOL [Suspect]
     Indication: HEPATITIS B
     Dosage: ORAL
     Route: 048
     Dates: start: 20030912
  4. EPIVIR [Concomitant]

REACTIONS (1)
  - DEATH [None]
